FAERS Safety Report 22360997 (Version 1)
Quarter: 2023Q2

REPORT INFORMATION
  Report Type: Spontaneous
  Country: HK (occurrence: HK)
  Receive Date: 20230524
  Receipt Date: 20230524
  Transmission Date: 20230721
  Serious: Yes (Hospitalization)
  Sender: FDA-Public Use
  Company Number: HK-MYLANLABS-2023M1053309

PATIENT
  Age: 14 Year
  Sex: Male

DRUGS (25)
  1. DIAZEPAM [Suspect]
     Active Substance: DIAZEPAM
     Indication: Dystonia
     Dosage: UNK
     Route: 048
  2. DIAZEPAM [Suspect]
     Active Substance: DIAZEPAM
     Indication: Dyskinesia
     Dosage: UNK (DOSE DECREASED)
     Route: 048
  3. BACLOFEN [Suspect]
     Active Substance: BACLOFEN
     Indication: Movement disorder
     Dosage: UNK
     Route: 065
  4. BACLOFEN [Suspect]
     Active Substance: BACLOFEN
     Dosage: UNK (GRADULLAY TAPERED OFF)
     Route: 065
  5. TETRABENAZINE [Suspect]
     Active Substance: TETRABENAZINE
     Indication: Movement disorder
     Dosage: UNK
     Route: 065
  6. TETRABENAZINE [Suspect]
     Active Substance: TETRABENAZINE
     Dosage: UNK (GRADULLAY TAPERED OFF)
     Route: 065
  7. CARBAMAZEPINE [Suspect]
     Active Substance: CARBAMAZEPINE
     Indication: Epilepsy
     Dosage: UNK
     Route: 065
  8. CLOBAZAM [Suspect]
     Active Substance: CLOBAZAM
     Indication: Epilepsy
     Dosage: UNK
     Route: 065
  9. MIDAZOLAM [Suspect]
     Active Substance: MIDAZOLAM
     Indication: Dystonia
     Dosage: 0.2 MILLIGRAM/KILOGRAM, QH
     Route: 042
  10. MIDAZOLAM [Suspect]
     Active Substance: MIDAZOLAM
     Indication: Dyskinesia
     Dosage: UNK, DOSE DECREASED
     Route: 042
  11. MORPHINE [Suspect]
     Active Substance: MORPHINE
     Indication: Dystonia
     Dosage: 20 MICROGRAM/KILOGRAM, QH
     Route: 042
  12. MORPHINE [Suspect]
     Active Substance: MORPHINE
     Indication: Dyskinesia
     Dosage: UNK (DOSE DECREASED)
     Route: 042
  13. MORPHINE [Suspect]
     Active Substance: MORPHINE
     Indication: Dystonia
     Dosage: UNK
     Route: 048
  14. MORPHINE [Suspect]
     Active Substance: MORPHINE
     Indication: Dyskinesia
     Dosage: 3 MILLIGRAM, Q6H
     Route: 048
  15. CLONIDINE [Suspect]
     Active Substance: CLONIDINE
     Indication: Dystonia
     Dosage: 0.58 MICROG/KG/DOSE EVERY 8H
     Route: 048
  16. CLONIDINE [Suspect]
     Active Substance: CLONIDINE
     Indication: Dyskinesia
     Dosage: UNK, DOSE DECREASED
     Route: 048
  17. CLONIDINE [Suspect]
     Active Substance: CLONIDINE
     Dosage: 0.05 MILLIGRAM, Q6H
     Route: 048
  18. CLONIDINE [Suspect]
     Active Substance: CLONIDINE
     Dosage: UNK (TAPERED)
     Route: 048
  19. CHLORAL HYDRATE [Suspect]
     Active Substance: CHLORAL HYDRATE
     Indication: Dyskinesia
     Dosage: 23 MG/KG/DOSE EVERY 6H
     Route: 048
  20. CHLORAL HYDRATE [Suspect]
     Active Substance: CHLORAL HYDRATE
     Indication: Dystonia
     Dosage: UNK, DOSE DECREASED
     Route: 048
  21. CHLORAL HYDRATE [Suspect]
     Active Substance: CHLORAL HYDRATE
     Dosage: 500 MILLIGRAM, QD
     Route: 048
  22. CHLORAL HYDRATE [Suspect]
     Active Substance: CHLORAL HYDRATE
     Dosage: UNK, TAPERED
     Route: 048
  23. KETAMINE [Suspect]
     Active Substance: KETAMINE
     Indication: Dystonia
     Dosage: 5 MICROGRAM/KILOGRAM, QMINUTE
     Route: 042
  24. KETAMINE [Suspect]
     Active Substance: KETAMINE
     Indication: Dyskinesia
     Dosage: UNK (DOSE DECREASED)
     Route: 042
  25. FUROSEMIDE [Concomitant]
     Active Substance: FUROSEMIDE
     Indication: Prophylaxis
     Dosage: 1.2 MILLIGRAM/KILOGRAM, QH (INFUSION)
     Route: 042

REACTIONS (8)
  - Hypoventilation [Recovering/Resolving]
  - Acute kidney injury [Recovering/Resolving]
  - Hyperphosphataemia [Recovering/Resolving]
  - Metabolic acidosis [Recovering/Resolving]
  - Rhabdomyolysis [Recovering/Resolving]
  - Sedation complication [Recovering/Resolving]
  - Respiratory failure [Recovering/Resolving]
  - Hypotension [Recovering/Resolving]
